FAERS Safety Report 15560756 (Version 2)
Quarter: 2019Q1

REPORT INFORMATION
  Report Type: Spontaneous
  Country: US (occurrence: US)
  Receive Date: 20181029
  Receipt Date: 20190227
  Transmission Date: 20190417
  Serious: Yes (Hospitalization)
  Sender: FDA-Public Use
  Company Number: US-PFIZER INC-2018425912

PATIENT
  Age: 62 Year
  Sex: Female

DRUGS (4)
  1. BUPIVACAINE HCL [Suspect]
     Active Substance: BUPIVACAINE HYDROCHLORIDE
     Indication: KNEE ARTHROPLASTY
     Dosage: UNK
     Dates: start: 20181017
  2. EPINEPHRINE. [Suspect]
     Active Substance: EPINEPHRINE
     Indication: SPINAL ANAESTHESIA
     Dosage: 1 ML, UNK
     Dates: start: 20181017
  3. EPINEPHRINE. [Suspect]
     Active Substance: EPINEPHRINE
     Dosage: UNK
  4. BUPIVACAINE HCL [Suspect]
     Active Substance: BUPIVACAINE HYDROCHLORIDE
     Dosage: UNK

REACTIONS (1)
  - Drug ineffective [Recovered/Resolved]
